APPROVED DRUG PRODUCT: DEFLAZACORT
Active Ingredient: DEFLAZACORT
Strength: 22.75MG/ML
Dosage Form/Route: SUSPENSION;ORAL
Application: A220042 | Product #001 | TE Code: AB
Applicant: ZYDUS LIFESCIENCES GLOBAL FZE
Approved: Oct 3, 2025 | RLD: No | RS: No | Type: RX